FAERS Safety Report 4743483-X (Version None)
Quarter: 2005Q3

REPORT INFORMATION
  Report Type: 
  Country: None (occurrence: None)
  Receive Date: 20050809
  Receipt Date: 20050715
  Transmission Date: 20060218
  Serious: Yes (Hospitalization)
  Sender: FDA-Public Use
  Company Number: 13547

PATIENT
  Age: 65 Year
  Sex: Male

DRUGS (1)
  1. CLOFARABINE [Suspect]
     Indication: ACUTE MYELOID LEUKAEMIA
     Dosage: 44.4 G QD X 5 IV
     Route: 042
     Dates: start: 20041223, end: 20050212

REACTIONS (1)
  - LOWER RESPIRATORY TRACT INFECTION [None]
